FAERS Safety Report 8484652-5 (Version None)
Quarter: 2012Q2

REPORT INFORMATION
  Report Type: 
  Country: None (occurrence: None)
  Receive Date: 20120625
  Receipt Date: 20120613
  Transmission Date: 20120825
  Serious: Yes (Death, Hospitalization)
  Sender: FDA-Public Use
  Company Number: 2012AP001838

PATIENT
  Age: 69 Year
  Sex: Male

DRUGS (9)
  1. METOPROLOL [Concomitant]
  2. GABAPENTIN [Concomitant]
  3. SERTRALINE HYDROCHLORIDE [Concomitant]
  4. CLOPIDOGREL [Concomitant]
  5. GLIPIZIDE [Concomitant]
  6. METFORMIN HCL [Suspect]
     Indication: PRODUCT USED FOR UNKNOWN INDICATION
  7. LISINOPRIL [Concomitant]
  8. OMEPRAZOLE [Concomitant]
  9. ROSUVASTATIN [Concomitant]

REACTIONS (13)
  - BLOOD CREATININE INCREASED [None]
  - ABDOMINAL TENDERNESS [None]
  - INTESTINAL ISCHAEMIA [None]
  - ABDOMINAL PAIN [None]
  - LACTIC ACIDOSIS [None]
  - GASTROINTESTINAL SOUNDS ABNORMAL [None]
  - BLOOD GLUCOSE INCREASED [None]
  - SEPSIS [None]
  - HYPERHIDROSIS [None]
  - OCCULT BLOOD POSITIVE [None]
  - ANION GAP INCREASED [None]
  - BLOOD UREA INCREASED [None]
  - DRUG LEVEL ABOVE THERAPEUTIC [None]
